FAERS Safety Report 23838664 (Version 1)
Quarter: 2024Q2

REPORT INFORMATION
  Report Type: Spontaneous
  Country: US (occurrence: US)
  Receive Date: 20240509
  Receipt Date: 20240509
  Transmission Date: 20240716
  Serious: No
  Sender: FDA-Public Use
  Company Number: US-Nobelpharma America, LLC-NPA-2024-00706

PATIENT
  Sex: Female

DRUGS (6)
  1. HYFTOR [Suspect]
     Active Substance: SIROLIMUS
     Indication: Benign neoplasm
     Dosage: APPLY ONCE DAILY TO AFFECTED AREAS
     Route: 003
     Dates: start: 20221222
  2. ALBUTEROL [Concomitant]
     Active Substance: ALBUTEROL
  3. Benzoyl [Concomitant]
  4. FLOVENT [Concomitant]
     Active Substance: FLUTICASONE PROPIONATE
  5. FLUTICASONE [Concomitant]
     Active Substance: FLUTICASONE
  6. LORATADINE [Concomitant]
     Active Substance: LORATADINE

REACTIONS (4)
  - Burning sensation [Unknown]
  - Product dose omission issue [None]
  - Off label use [None]
  - Off label use [None]
